FAERS Safety Report 7214491-4 (Version None)
Quarter: 2010Q4

REPORT INFORMATION
  Report Type: 
  Country: None (occurrence: None)
  Receive Date: 20101126
  Receipt Date: 20100527
  Transmission Date: 20110411
  Serious: Yes (Hospitalization)
  Sender: FDA-Public Use
  Company Number: WAES 1005USA04554

PATIENT
  Age: 71 Year
  Sex: Female

DRUGS (2)
  1. FOSAMAX [Suspect]
     Indication: OSTEOPENIA
     Dosage: DAILY/PO
     Route: 048
     Dates: start: 19920101
  2. FOSAMAX [Suspect]
     Indication: OSTEOPENIA
     Dosage: 70 MG/WKY/PO
     Route: 048

REACTIONS (4)
  - ADVERSE EVENT [None]
  - BONE DENSITY DECREASED [None]
  - DYSPNOEA [None]
  - LOWER LIMB FRACTURE [None]
